FAERS Safety Report 12482103 (Version 1)
Quarter: 2016Q2

REPORT INFORMATION
  Report Type: Other
  Country: TW (occurrence: TW)
  Receive Date: 20160620
  Receipt Date: 20160620
  Transmission Date: 20160815
  Serious: Yes (Life-Threatening)
  Sender: FDA-Public Use
  Company Number: TW-ACIC FINE CHEMICALS INC-1054069

PATIENT
  Age: 47 Year
  Sex: Male
  Weight: 51 kg

DRUGS (9)
  1. FUROSEMIDE. [Concomitant]
     Active Substance: FUROSEMIDE
     Route: 042
  2. MIDAZOLAM [Concomitant]
     Active Substance: MIDAZOLAM\MIDAZOLAM HYDROCHLORIDE
     Route: 042
  3. EPINEPHRINE. [Concomitant]
     Active Substance: EPINEPHRINE
     Route: 042
  4. THIAMYLAL [Concomitant]
     Active Substance: THIAMYLAL
     Route: 042
  5. CALCIUM GLUCONATE. [Concomitant]
     Active Substance: CALCIUM GLUCONATE
     Route: 042
  6. TRANEXAMIC ACID. [Suspect]
     Active Substance: TRANEXAMIC ACID
     Indication: HAEMORRHAGE
     Route: 040
  7. CISATRACURIUM. [Concomitant]
     Active Substance: CISATRACURIUM
     Route: 042
  8. ATROPINE. [Concomitant]
     Active Substance: ATROPINE
     Route: 017
  9. FENTANYL. [Concomitant]
     Active Substance: FENTANYL
     Route: 042

REACTIONS (6)
  - Lung infiltration [Recovered/Resolved]
  - Pneumothorax [None]
  - Procedural complication [None]
  - Pulmonary thrombosis [Recovered/Resolved]
  - Pulmonary oedema [Recovered/Resolved]
  - Bradycardia [None]
